FAERS Safety Report 4759135-6 (Version None)
Quarter: 2005Q3

REPORT INFORMATION
  Report Type: 
  Country: None (occurrence: None)
  Receive Date: 20050831
  Receipt Date: 20050819
  Transmission Date: 20060218
  Serious: Yes (Death, Life-Threatening, Hospitalization, Disabling)
  Sender: FDA-Public Use
  Company Number: E044-318-3803

PATIENT
  Age: 70 Year
  Sex: Male
  Weight: 81.9 kg

DRUGS (23)
  1. DONEPEZIL HCL [Suspect]
     Indication: DEMENTIA
     Dosage: 5 MG, 1 IN 1 D, ORAL
     Route: 048
     Dates: start: 20040817, end: 20050622
  2. DONEPEZIL HCL [Suspect]
     Indication: PARKINSON'S DISEASE
     Dosage: 5 MG, 1 IN 1 D, ORAL
     Route: 048
     Dates: start: 20040817, end: 20050622
  3. DONEPEZIL HCL [Suspect]
     Indication: DEMENTIA
     Dosage: 5 MG, 1 IN 1 D, ORAL
     Route: 048
     Dates: start: 20050624, end: 20050715
  4. DONEPEZIL HCL [Suspect]
     Indication: PARKINSON'S DISEASE
     Dosage: 5 MG, 1 IN 1 D, ORAL
     Route: 048
     Dates: start: 20050624, end: 20050715
  5. DONEPEZIL HCL [Suspect]
     Indication: DEMENTIA
     Dosage: DOUBLEBLIND, 1 IN 1 D, ORAL
     Route: 048
     Dates: start: 20040204, end: 20040816
  6. DONEPEZIL HCL [Suspect]
     Indication: PARKINSON'S DISEASE
     Dosage: DOUBLEBLIND, 1 IN 1 D, ORAL
     Route: 048
     Dates: start: 20040204, end: 20040816
  7. LEVODOPA (LEVODOPA) [Concomitant]
  8. OMEPRAZOLE [Concomitant]
  9. RAMIPRIL [Concomitant]
  10. CAVERJET (ALPROSTADIL) [Concomitant]
  11. DEBRISINOL (TOLTERODINE L-TARTRATE) [Concomitant]
  12. AMBROXOL (AMBROXOL) [Concomitant]
  13. PIPERACILLIN SODIUM [Concomitant]
  14. COMBACTIM (SULBACTAM SODIUM) [Concomitant]
  15. FRAXIPARIN (HEPARIN-FRACTION, CALCIUM SALT) [Concomitant]
  16. NEXIUM [Concomitant]
  17. BELOC (METOPROLOL TARTRATE) [Concomitant]
  18. ALLOPURINOL [Concomitant]
  19. NORVASC [Concomitant]
  20. COPYRKAL (COPYRKAL) [Concomitant]
  21. METOPROLOL TARTRATE [Concomitant]
  22. CARMEN (LERCANIDIPINE) [Concomitant]
  23. MOTILIUM [Concomitant]

REACTIONS (11)
  - ARRHYTHMIA [None]
  - CARDIAC DISORDER [None]
  - CARDIOPULMONARY FAILURE [None]
  - CEREBRAL HAEMORRHAGE [None]
  - CONVULSION [None]
  - HYPERCAPNIA [None]
  - HYPOXIA [None]
  - PNEUMONIA ASPIRATION [None]
  - RESPIRATORY FAILURE [None]
  - SICK SINUS SYNDROME [None]
  - SYNCOPE [None]
